FAERS Safety Report 4332791-2 (Version None)
Quarter: 2004Q1

REPORT INFORMATION
  Report Type: 
  Country: None (occurrence: None)
  Receive Date: 20040330
  Receipt Date: 20040315
  Transmission Date: 20041129
  Serious: No
  Sender: FDA-Public Use
  Company Number: A04200400248

PATIENT
  Age: 84 Year
  Sex: Female

DRUGS (5)
  1. ARIXTRA [Suspect]
     Indication: FEMUR FRACTURE
     Dosage: 2.5 MG OD
     Route: 058
     Dates: start: 20031218, end: 20031226
  2. ARIXTRA [Suspect]
     Indication: THROMBOSIS PROPHYLAXIS
     Dosage: 2.5 MG OD
     Route: 058
     Dates: start: 20031218, end: 20031226
  3. VIOXX [Concomitant]
  4. PROPRANOLOL HCL [Concomitant]
  5. FUROSEMIDE [Concomitant]

REACTIONS (4)
  - ANAEMIA [None]
  - DUODENAL ULCER [None]
  - DUODENAL ULCER HAEMORRHAGE [None]
  - GASTRIC HAEMORRHAGE [None]
